FAERS Safety Report 6168710-6 (Version None)
Quarter: 2009Q2

REPORT INFORMATION
  Report Type: 
  Country: None (occurrence: None)
  Receive Date: 20090427
  Receipt Date: 20090417
  Transmission Date: 20091009
  Serious: Yes (Hospitalization, Other)
  Sender: FDA-Public Use
  Company Number: US-ABBOTT-09P-163-0568816-00

PATIENT
  Sex: Female
  Weight: 45.4 kg

DRUGS (1)
  1. SYNTHROID [Suspect]
     Indication: AUTOIMMUNE THYROIDITIS
     Dosage: VARYING DOSES-NOT SPECIFIED
     Route: 048
     Dates: start: 19690101

REACTIONS (18)
  - AORTIC ANEURYSM [None]
  - ASTHMA [None]
  - ATRIAL FIBRILLATION [None]
  - BLOOD THYROID STIMULATING HORMONE INCREASED [None]
  - EMPHYSEMA [None]
  - EXCORIATION [None]
  - FALL [None]
  - HYPERSENSITIVITY [None]
  - HYPERTENSION [None]
  - IMPAIRED HEALING [None]
  - INJURY [None]
  - LIMB INJURY [None]
  - LYMPHOMA [None]
  - OSTEOPOROSIS [None]
  - ROAD TRAFFIC ACCIDENT [None]
  - SKIN ATROPHY [None]
  - SPLENOMEGALY [None]
  - WHITE BLOOD CELL COUNT ABNORMAL [None]
